FAERS Safety Report 16536397 (Version 2)
Quarter: 2019Q3

REPORT INFORMATION
  Report Type: Spontaneous
  Country: FR (occurrence: FR)
  Receive Date: 20190706
  Receipt Date: 20190712
  Transmission Date: 20191004
  Serious: Yes (Hospitalization, Other)
  Sender: FDA-Public Use
  Company Number: FR-AUROBINDO-AUR-APL-2019-037693

PATIENT

DRUGS (1)
  1. AMOXICILLIN. [Suspect]
     Active Substance: AMOXICILLIN
     Indication: SINUSITIS
     Dosage: UNK
     Route: 065

REACTIONS (4)
  - Antiphospholipid syndrome [Unknown]
  - Proteinuria [Recovered/Resolved]
  - Hypertension [Recovered/Resolved]
  - Hypertensive crisis [Recovered/Resolved]
